FAERS Safety Report 13341969 (Version 1)
Quarter: 2017Q1

REPORT INFORMATION
  Report Type: Spontaneous
  Country: US (occurrence: US)
  Receive Date: 20170316
  Receipt Date: 20170316
  Transmission Date: 20170428
  Serious: No
  Sender: FDA-Public Use
  Company Number: US-ROCHE-1714280

PATIENT

DRUGS (1)
  1. ERIVEDGE [Suspect]
     Active Substance: VISMODEGIB
     Indication: MALIGNANT MELANOMA
     Route: 065

REACTIONS (3)
  - Gastric disorder [Unknown]
  - Hypersensitivity [Unknown]
  - Rash [Unknown]
